FAERS Safety Report 6348703-6 (Version None)
Quarter: 2009Q3

REPORT INFORMATION
  Report Type: 
  Country: None (occurrence: None)
  Receive Date: 20090911
  Receipt Date: 20090901
  Transmission Date: 20100115
  Serious: Yes (Other)
  Sender: FDA-Public Use
  Company Number: PHHY2009JP21489

PATIENT
  Age: 74 Year
  Sex: Male

DRUGS (7)
  1. LAMISIL [Suspect]
     Indication: ONYCHOMYCOSIS
     Dosage: 125 MG/DAY
     Route: 048
     Dates: start: 20060609, end: 20090524
  2. DIOVAN [Concomitant]
     Dosage: 80 MG, UNK
     Route: 048
     Dates: start: 20080603
  3. ATELEC [Concomitant]
     Dosage: 10 MG, UNK
     Route: 048
     Dates: start: 20080603
  4. ISALON [Concomitant]
     Dosage: 200 MG, UNK
     Route: 048
     Dates: start: 20081021
  5. SIMVASTATIN [Concomitant]
     Dosage: 5 MG, UNK
     Route: 048
     Dates: start: 20040521
  6. OMEPRAL [Concomitant]
     Dosage: 10 MG, UNK
     Route: 048
     Dates: start: 20080512
  7. EVAMYL [Concomitant]
     Dosage: 1 MG, UNK
     Route: 048

REACTIONS (4)
  - HAEMATOCRIT DECREASED [None]
  - HAEMOGLOBIN DECREASED [None]
  - LOSS OF CONSCIOUSNESS [None]
  - RED BLOOD CELL COUNT DECREASED [None]
